FAERS Safety Report 24274947 (Version 1)
Quarter: 2024Q3

REPORT INFORMATION
  Report Type: Report from Study
  Country: US (occurrence: US)
  Receive Date: 20240902
  Receipt Date: 20240902
  Transmission Date: 20241017
  Serious: Yes (Death, Other)
  Sender: JAZZ
  Company Number: US-JAZZ PHARMACEUTICALS-2024-US-013972

PATIENT
  Age: 6 Year
  Sex: Male

DRUGS (2)
  1. EPIDIOLEX [Suspect]
     Active Substance: CANNABIDIOL
     Indication: Torticollis
     Dosage: 1.5 MILLILITER VIA G-TUBE IN THE MORNING AND AFTERNOON, THEN 2 MILLILITER IN THE EVENING
     Dates: start: 202209, end: 202407
  2. EPIDIOLEX [Suspect]
     Active Substance: CANNABIDIOL
     Indication: Cerebral palsy

REACTIONS (2)
  - Death [Fatal]
  - Off label use [Unknown]

NARRATIVE: CASE EVENT DATE: 20240730
